FAERS Safety Report 6289152-9 (Version None)
Quarter: 2009Q3

REPORT INFORMATION
  Report Type: 
  Country: None (occurrence: None)
  Receive Date: 20090728
  Receipt Date: 20090620
  Transmission Date: 20100115
  Serious: Yes (Life-Threatening, Hospitalization)
  Sender: FDA-Public Use
  Company Number: 2006EU001271

PATIENT
  Age: 33 Year
  Sex: Male

DRUGS (21)
  1. TACROLIMUS [Suspect]
     Indication: RENAL TRANSPLANT
     Dosage: 5 MG, BID, ORAL; 3 MG, BID, ORAL; 1.5 MG, BID, ORAL
     Route: 048
     Dates: start: 20040818, end: 20040929
  2. TACROLIMUS [Suspect]
     Indication: RENAL TRANSPLANT
     Dosage: 5 MG, BID, ORAL; 3 MG, BID, ORAL; 1.5 MG, BID, ORAL
     Route: 048
     Dates: start: 20050620
  3. DACLIZUMAB(DACLIZUMAB) [Suspect]
     Indication: RENAL TRANSPLANT
     Dosage: 180 MG, IV NOS
     Route: 042
     Dates: start: 20040616, end: 20040809
  4. MYCOPHENOLATE MOFETIL [Suspect]
     Indication: RENAL TRANSPLANT
     Dosage: 1 G, BID, ORAL; 500 MG, BID,
     Route: 048
     Dates: end: 20040826
  5. MYCOPHENOLATE MOFETIL [Suspect]
     Indication: RENAL TRANSPLANT
     Dosage: 1 G, BID, ORAL; 500 MG, BID,
     Route: 048
     Dates: start: 20050116, end: 20050306
  6. MYCOPHENOLATE MOFETIL [Suspect]
     Indication: RENAL TRANSPLANT
     Dosage: 1 G, BID, ORAL; 500 MG, BID,
     Route: 048
     Dates: start: 20040616
  7. PREDNISONE TAB [Suspect]
     Indication: RENAL TRANSPLANT
     Dosage: 10 MG, UID/QD, ORAL; 5 MG, UID/QD, ORAL
     Route: 048
     Dates: start: 20040116
  8. PREDNISONE TAB [Suspect]
     Indication: RENAL TRANSPLANT
     Dosage: 10 MG, UID/QD, ORAL; 5 MG, UID/QD, ORAL
     Route: 048
     Dates: start: 20040618
  9. SIROLIMUS(SIROLIMUS) [Suspect]
     Indication: RENAL TRANSPLANT
     Dosage: 2.8 ML, UID/QD, ORAL
     Route: 048
     Dates: start: 20040616, end: 20040818
  10. METHYLPREDNISOLONE [Suspect]
     Indication: RENAL TRANSPLANT
     Dosage: 250 MG, IV NOS
     Route: 042
     Dates: start: 20040116, end: 20041023
  11. OMEPRAZOLE [Concomitant]
  12. FLUVASTATIN [Concomitant]
  13. VALACYCLOVIR [Concomitant]
  14. METOCLOPRAMID (METOCLOPRAMIDE HYDROCHLORIDE) [Concomitant]
  15. LEVETIRACETAM [Concomitant]
  16. AMLODIPINE [Concomitant]
  17. AMPHOTERICIN B [Concomitant]
  18. DOXAZOSIN (DOXAZOSIN MESILATE) [Concomitant]
  19. METOPROLOL SUCCINATE [Concomitant]
  20. RAMIPRIL [Concomitant]
  21. SULFAMETHOXAZOLE AND TRIMETHOPRIM (SULFAMETHOXAZOLE, TRIMETHOPRIM) [Concomitant]

REACTIONS (8)
  - BLOOD CREATININE INCREASED [None]
  - HERNIA OBSTRUCTIVE [None]
  - ILEUS [None]
  - INTESTINAL INFARCTION [None]
  - PNEUMONIA PNEUMOCOCCAL [None]
  - RESPIRATORY FAILURE [None]
  - SEPTIC SHOCK [None]
  - SUTURE RUPTURE [None]
